FAERS Safety Report 8162228-7 (Version None)
Quarter: 2012Q1

REPORT INFORMATION
  Report Type: 
  Country: None (occurrence: None)
  Receive Date: 20120224
  Receipt Date: 20111012
  Transmission Date: 20120608
  Serious: No
  Sender: FDA-Public Use
  Company Number: US-BRISTOL-MYERS SQUIBB COMPANY-16158495

PATIENT

DRUGS (1)
  1. METFORMIN HCL [Suspect]

REACTIONS (4)
  - WEIGHT INCREASED [None]
  - DIARRHOEA [None]
  - HUNGER [None]
  - OEDEMA PERIPHERAL [None]
